FAERS Safety Report 16178341 (Version 1)
Quarter: 2019Q2

REPORT INFORMATION
  Report Type: Spontaneous
  Country: US (occurrence: US)
  Receive Date: 20190410
  Receipt Date: 20190410
  Transmission Date: 20190711
  Serious: Yes (Hospitalization, Other)
  Sender: FDA-Public Use
  Company Number: US-SA-2019SA095468

PATIENT
  Sex: Female

DRUGS (1)
  1. LEMTRADA [Suspect]
     Active Substance: ALEMTUZUMAB

REACTIONS (8)
  - Still^s disease [Recovering/Resolving]
  - Cystitis [Recovering/Resolving]
  - Serum ferritin increased [Recovering/Resolving]
  - Haemophagocytic lymphohistiocytosis [Recovering/Resolving]
  - Liver function test increased [Recovering/Resolving]
  - Rash [Unknown]
  - Urticaria [Unknown]
  - Pyrexia [Recovering/Resolving]
